FAERS Safety Report 16969026 (Version 21)
Quarter: 2020Q2

REPORT INFORMATION
  Report Type: Report from Study
  Country: None (occurrence: CN)
  Receive Date: 20191029
  Receipt Date: 20200617
  Transmission Date: 20200713
  Serious: Yes (Hospitalization)
  Sender: FDA-Public Use
  Company Number: CN-CELLTRION, INC.-2076125

PATIENT
  Age: 74 Year
  Sex: Female
  Weight: 72 kg

DRUGS (16)
  1. IRBESARTAN. [Concomitant]
     Active Substance: IRBESARTAN
  2. LANSOPRAZOLE. [Concomitant]
     Active Substance: LANSOPRAZOLE
  3. SPIRONOLACTONE. [Concomitant]
     Active Substance: SPIRONOLACTONE
  4. HYDROXYCHLOROQUINE SULFATE. [Concomitant]
     Active Substance: HYDROXYCHLOROQUINE SULFATE
  5. IRBESARTAN. [Concomitant]
     Active Substance: IRBESARTAN
  6. CALCIUM CARBONATE. [Concomitant]
     Active Substance: CALCIUM CARBONATE
  7. DEXAMETHASONE SODIUM PHOSPHATE. [Concomitant]
     Active Substance: DEXAMETHASONE SODIUM PHOSPHATE
  8. PREDNISONE. [Concomitant]
     Active Substance: PREDNISONE
  9. HYDROCHLOROTHIAZIDE. [Concomitant]
     Active Substance: HYDROCHLOROTHIAZIDE
  10. TRIPTERYGIUM WILFORDII [Concomitant]
     Active Substance: HERBALS
  11. GLUCOSAMINE [Concomitant]
     Active Substance: GLUCOSAMINE
  12. CALCITRIOL. [Concomitant]
     Active Substance: CALCITRIOL
  13. TRUXIMA [Suspect]
     Active Substance: RITUXIMAB-ABBS
  14. ALFA CALCINOL (ALFACALCIDOL, CALCIUM CARBONATE, CALCIUM CITRATE, CALCI [Concomitant]
  15. DIACEREIN [Concomitant]
     Active Substance: DIACEREIN
  16. GLYCEROL-SALINE CONTROL [Concomitant]
     Active Substance: GLYCERIN

REACTIONS (1)
  - Chronic obstructive pulmonary disease [Recovering/Resolving]

NARRATIVE: CASE EVENT DATE: 20190729
